FAERS Safety Report 22082507 (Version 1)
Quarter: 2023Q1

REPORT INFORMATION
  Report Type: Spontaneous
  Country: GB (occurrence: GB)
  Receive Date: 20230310
  Receipt Date: 20230310
  Transmission Date: 20230418
  Serious: Yes (Other)
  Sender: FDA-Public Use
  Company Number: None

PATIENT

DRUGS (20)
  1. SIMPONI [Suspect]
     Active Substance: GOLIMUMAB
     Indication: Product used for unknown indication
     Route: 065
  2. SIMPONI [Suspect]
     Active Substance: GOLIMUMAB
  3. SIMPONI [Suspect]
     Active Substance: GOLIMUMAB
  4. ESTRADIOL [Suspect]
     Active Substance: ESTRADIOL
     Indication: Product used for unknown indication
     Dosage: 2MG OD
     Route: 065
  5. ASPIRIN [Concomitant]
     Active Substance: ASPIRIN
  6. ATORVASTATIN [Concomitant]
     Active Substance: ATORVASTATIN
  7. BUPRENORPHINE [Concomitant]
     Active Substance: BUPRENORPHINE
  8. CLOMIPRAMINE [Concomitant]
     Active Substance: CLOMIPRAMINE
  9. CLOPIDOGREL [Concomitant]
     Active Substance: CLOPIDOGREL BISULFATE
  10. DARIFENACIN [Concomitant]
     Active Substance: DARIFENACIN
  11. DIHYDROCODEINE [Concomitant]
     Active Substance: DIHYDROCODEINE
  12. DOXAZOSIN [Concomitant]
     Active Substance: DOXAZOSIN MESYLATE
  13. FEXOFENADINE [Concomitant]
     Active Substance: FEXOFENADINE HYDROCHLORIDE
  14. INDAPAMIDE [Concomitant]
     Active Substance: INDAPAMIDE
  15. LANSOPRAZOLE [Concomitant]
     Active Substance: LANSOPRAZOLE
  16. MIRTAZAPINE [Concomitant]
     Active Substance: MIRTAZAPINE
  17. ACETAMINOPHEN [Concomitant]
     Active Substance: ACETAMINOPHEN
  18. PREGABALIN [Concomitant]
     Active Substance: PREGABALIN
  19. RAMIPRIL [Concomitant]
     Active Substance: RAMIPRIL
  20. SERTRALINE [Concomitant]
     Active Substance: SERTRALINE HYDROCHLORIDE

REACTIONS (1)
  - Cerebrovascular accident [Unknown]
